FAERS Safety Report 22273145 (Version 1)
Quarter: 2023Q2

REPORT INFORMATION
  Report Type: Spontaneous
  Country: CA (occurrence: CA)
  Receive Date: 20230502
  Receipt Date: 20230502
  Transmission Date: 20230721
  Serious: Yes (Hospitalization, Other)
  Sender: FDA-Public Use
  Company Number: CA-CELLTRION INC.-2017CA017687

PATIENT

DRUGS (24)
  1. INFLECTRA [Suspect]
     Active Substance: INFLIXIMAB-DYYB
     Indication: Colitis ulcerative
     Dosage: 264 MG, Q 0, 2, 6 THEN EVERY 8 WEEKS
     Route: 042
     Dates: start: 20171116
  2. INFLECTRA [Suspect]
     Active Substance: INFLIXIMAB-DYYB
     Dosage: 5 MG/KG, EVERY 8 WEEKS
     Route: 042
     Dates: start: 20171116, end: 20230307
  3. INFLECTRA [Suspect]
     Active Substance: INFLIXIMAB-DYYB
     Dosage: 264 MG, Q 0, 2, 6  THEN EVERY 8 WEEKS
     Route: 042
     Dates: start: 20171228
  4. INFLECTRA [Suspect]
     Active Substance: INFLIXIMAB-DYYB
     Dosage: 264 MG, Q 0, 2, 6  THEN EVERY 8 WEEKS
     Route: 042
     Dates: start: 20180419
  5. INFLECTRA [Suspect]
     Active Substance: INFLIXIMAB-DYYB
     Dosage: 264 MG, Q 0, 2, 6  THEN EVERY 8 WEEKS
     Route: 042
     Dates: start: 20180613
  6. INFLECTRA [Suspect]
     Active Substance: INFLIXIMAB-DYYB
     Dosage: 264 MG, Q 0, 2, 6  THEN EVERY 8 WEEKS
     Route: 042
     Dates: start: 20180810
  7. INFLECTRA [Suspect]
     Active Substance: INFLIXIMAB-DYYB
     Dosage: 264 MG, Q 0, 2, 6  THEN EVERY 8 WEEKS
     Route: 042
     Dates: start: 20180810
  8. INFLECTRA [Suspect]
     Active Substance: INFLIXIMAB-DYYB
     Dosage: 264 MG, Q 0, 2, 6 THEN EVERY 8 WEEKS
     Route: 042
     Dates: start: 20181004
  9. INFLECTRA [Suspect]
     Active Substance: INFLIXIMAB-DYYB
     Dosage: 5 MG/KG AT 0,2,6 THEN EVERY 8 WEEKS
     Route: 042
     Dates: start: 20200529
  10. INFLECTRA [Suspect]
     Active Substance: INFLIXIMAB-DYYB
     Dosage: 5 MG/KG AT 0,2,6 THEN EVERY 8 WEEKS
     Route: 042
     Dates: start: 20200721
  11. INFLECTRA [Suspect]
     Active Substance: INFLIXIMAB-DYYB
     Dosage: 5 MG/KG AT 0,2,6 THEN EVERY 8 WEEKS
     Route: 042
     Dates: start: 20200919
  12. INFLECTRA [Suspect]
     Active Substance: INFLIXIMAB-DYYB
     Dosage: 7 MG/KG, EVERY 8 WEEKS
     Route: 042
     Dates: start: 20210705
  13. INFLECTRA [Suspect]
     Active Substance: INFLIXIMAB-DYYB
     Dosage: 5 MG/KG, EVERY 8 WEEKS
     Route: 042
     Dates: start: 20210902
  14. INFLECTRA [Suspect]
     Active Substance: INFLIXIMAB-DYYB
     Dosage: 5 MG/KG, EVERY 8 WEEKS
     Route: 042
     Dates: start: 20211025
  15. INFLECTRA [Suspect]
     Active Substance: INFLIXIMAB-DYYB
     Dosage: 5 MG/KG, EVERY 8 WEEKS
     Route: 042
     Dates: start: 20220607
  16. INFLECTRA [Suspect]
     Active Substance: INFLIXIMAB-DYYB
     Dosage: 5 MG/KG, EVERY 8 WEEKS
     Route: 042
     Dates: start: 20220920
  17. INFLECTRA [Suspect]
     Active Substance: INFLIXIMAB-DYYB
     Dosage: 5 MG/KG, EVERY 8 WEEKS
     Route: 042
     Dates: start: 20221117
  18. INFLECTRA [Suspect]
     Active Substance: INFLIXIMAB-DYYB
     Dosage: 5 MG/KG, EVERY 8 WEEKS
     Route: 042
     Dates: start: 20230112
  19. INFLECTRA [Suspect]
     Active Substance: INFLIXIMAB-DYYB
     Dosage: 5 MG/KG, (260MG), EVERY 8 WEEKS
     Route: 042
     Dates: start: 20230307
  20. INFLECTRA [Suspect]
     Active Substance: INFLIXIMAB-DYYB
     Dosage: 5 MG/KG, (260MG), EVERY 4 WEEKS
     Route: 042
     Dates: start: 20230403
  21. INFLECTRA [Suspect]
     Active Substance: INFLIXIMAB-DYYB
     Dosage: 10 MG/KG, EVERY  4 WEEKS
     Route: 042
     Dates: start: 202304
  22. IRON [Concomitant]
     Active Substance: IRON
     Dosage: 1 DF, DOSAGE UNKNOWN
     Route: 048
  23. PREDNISONE [Concomitant]
     Active Substance: PREDNISONE
     Dosage: 1 DF, DOSAGE UNKNOWN - DECREASING DOSE
     Route: 065
  24. AMINOSALICYLIC ACID [Concomitant]
     Active Substance: AMINOSALICYLIC ACID
     Dosage: 1 DF, DOSAGE UNKNOWN
     Route: 065

REACTIONS (11)
  - Condition aggravated [Not Recovered/Not Resolved]
  - Weight increased [Recovered/Resolved]
  - Urinary tract infection bacterial [Recovering/Resolving]
  - Heart rate decreased [Unknown]
  - Rhinorrhoea [Unknown]
  - Rash [Recovered/Resolved]
  - COVID-19 [Not Recovered/Not Resolved]
  - Off label use [Unknown]
  - Intentional product use issue [Unknown]
  - Off label use [Unknown]
  - Inappropriate schedule of product administration [Unknown]

NARRATIVE: CASE EVENT DATE: 20171201
